FAERS Safety Report 7893760-9 (Version None)
Quarter: 2011Q4

REPORT INFORMATION
  Report Type: 
  Country: None (occurrence: None)
  Receive Date: 20111104
  Receipt Date: 20111027
  Transmission Date: 20120403
  Serious: Yes (Other)
  Sender: FDA-Public Use
  Company Number: IT-CELGENEUS-083-C5013-11103169

PATIENT
  Sex: Male
  Weight: 77 kg

DRUGS (9)
  1. LENALIDOMIDE [Suspect]
     Dosage: 15 MILLIGRAM
     Route: 048
     Dates: start: 20100330
  2. ACYCLOVIR [Concomitant]
     Route: 065
  3. OLPRESS [Concomitant]
     Dosage: 20 MILLIGRAM
     Route: 065
  4. LANSOPRAZOLE [Concomitant]
     Dosage: 15 MILLIGRAM
     Route: 065
  5. LENALIDOMIDE [Suspect]
     Dosage: 15 MILLIGRAM
     Route: 048
     Dates: start: 20110816, end: 20110912
  6. LEVOTHYROXINE SODIUM [Concomitant]
     Dosage: 100 MICROGRAM
     Route: 065
  7. ARANESP [Concomitant]
     Dosage: 21.4286 MICROGRAM
     Route: 058
  8. LAEVOLAC [Concomitant]
     Indication: CONSTIPATION
     Route: 065
  9. CALCIUM CARBONATE [Concomitant]
     Route: 065

REACTIONS (1)
  - REFRACTORY ANAEMIA WITH AN EXCESS OF BLASTS [None]
